FAERS Safety Report 9405623 (Version 1)
Quarter: 2013Q3

REPORT INFORMATION
  Report Type: Spontaneous
  Country: US (occurrence: US)
  Receive Date: 20130717
  Receipt Date: 20130717
  Transmission Date: 20140515
  Serious: Yes (Other)
  Sender: FDA-Public Use
  Company Number: US-PFIZER INC-2013207965

PATIENT
  Age: 82 Year
  Sex: Female
  Weight: 50.3 kg

DRUGS (4)
  1. XELJANZ [Suspect]
     Indication: RHEUMATOID ARTHRITIS
     Dosage: 5 MG, 2X/DAY
     Route: 048
     Dates: start: 2013
  2. PRANDIN [Concomitant]
     Indication: DIABETES MELLITUS
     Dosage: UNK
  3. BETAXOLOL [Concomitant]
     Indication: GLAUCOMA
     Dosage: 1X/DAY
     Route: 047
  4. ALPHAGAN [Concomitant]
     Indication: GLAUCOMA
     Dosage: 2X/DAY
     Route: 047

REACTIONS (2)
  - Rectal discharge [Not Recovered/Not Resolved]
  - Weight increased [Unknown]
